FAERS Safety Report 20901068 (Version 2)
Quarter: 2022Q2

REPORT INFORMATION
  Report Type: Other
  Country: US (occurrence: None)
  Receive Date: 20220601
  Receipt Date: 20220608
  Transmission Date: 20220720
  Serious: Yes (Hospitalization)
  Sender: FDA-Public Use
  Company Number: US-ROCHE-3106545

PATIENT
  Age: 70 Year
  Sex: Male

DRUGS (18)
  1. CELLCEPT [Suspect]
     Active Substance: MYCOPHENOLATE MOFETIL
     Indication: Product used for unknown indication
     Dosage: 500MG TABLET
     Route: 048
  2. VALCYTE [Suspect]
     Active Substance: VALGANCICLOVIR HYDROCHLORIDE
     Indication: Product used for unknown indication
     Dosage: 450MG TABLET
     Route: 048
  3. ASPIRIN [Concomitant]
     Active Substance: ASPIRIN
  4. ATORVASTATIN [Concomitant]
     Active Substance: ATORVASTATIN
  5. EPOETIN ALFA [Concomitant]
     Active Substance: ERYTHROPOIETIN
  6. EVEROLIMUS [Concomitant]
     Active Substance: EVEROLIMUS
  7. FERROUS SULFATE [Concomitant]
     Active Substance: FERROUS SULFATE
  8. FUROSEMIDE [Concomitant]
     Active Substance: FUROSEMIDE
  9. HEPARIN [Concomitant]
     Active Substance: HEPARIN SODIUM
  10. IRON SUCROSE [Concomitant]
     Active Substance: IRON SUCROSE
  11. MAGNESIUM CHLORIDE [Concomitant]
     Active Substance: MAGNESIUM CHLORIDE
  12. MELATONIN [Concomitant]
     Active Substance: MELATONIN
  13. METOPROLOL [Concomitant]
     Active Substance: METOPROLOL
  14. PANTOPRAZOLE [Concomitant]
     Active Substance: PANTOPRAZOLE
  15. POTASSIUM PHOSPHATE [Concomitant]
     Active Substance: POTASSIUM PHOSPHATE
  16. SODIUM PHOSPHATE [Concomitant]
     Active Substance: SODIUM PHOSPHATE
  17. BACTRIM DS [Concomitant]
     Active Substance: SULFAMETHOXAZOLE\TRIMETHOPRIM
  18. VALGANCICLOVIR [Concomitant]
     Active Substance: VALGANCICLOVIR

REACTIONS (31)
  - Oedema peripheral [Recovering/Resolving]
  - Hyponatraemia [Recovered/Resolved]
  - Acute kidney injury [Unknown]
  - Chronic hepatic failure [Unknown]
  - Cytomegalovirus test positive [Unknown]
  - Hypotension [Recovering/Resolving]
  - Anaemia [Unknown]
  - Diarrhoea [Recovering/Resolving]
  - Urinary tract obstruction [Recovering/Resolving]
  - Hydronephrosis [Unknown]
  - Hypervolaemia [Unknown]
  - Seizure [Recovered/Resolved]
  - Dysphagia [Recovered/Resolved]
  - Odynophagia [Recovered/Resolved]
  - Pyrexia [Recovered/Resolved]
  - Urinary tract obstruction [Unknown]
  - Epstein-Barr virus test positive [Unknown]
  - Hypophagia [Recovering/Resolving]
  - Therapeutic response decreased [Recovering/Resolving]
  - Overweight [Unknown]
  - Urinary tract infection [Unknown]
  - Pulmonary function test abnormal [Unknown]
  - Blood creatinine increased [Recovering/Resolving]
  - Haematuria [Recovering/Resolving]
  - Urinary bladder haemorrhage [Recovering/Resolving]
  - Oedema [Unknown]
  - Escherichia test positive [Recovering/Resolving]
  - Magnetic resonance imaging head abnormal [Unknown]
  - Haemoglobin abnormal [Recovering/Resolving]
  - Haematocrit abnormal [Recovering/Resolving]
  - Obesity [Unknown]

NARRATIVE: CASE EVENT DATE: 20220421
